FAERS Safety Report 10177702 (Version 1)
Quarter: 2014Q2

REPORT INFORMATION
  Report Type: Spontaneous
  Country: US (occurrence: US)
  Receive Date: 20140516
  Receipt Date: 20140516
  Transmission Date: 20141212
  Serious: No
  Sender: FDA-Public Use
  Company Number: US-SA-2014SA022939

PATIENT
  Age: 58 Year
  Sex: Female

DRUGS (2)
  1. APIDRA [Suspect]
     Dosage: DOSE:6 UNIT(S)
     Route: 065
  2. LANTUS [Suspect]
     Indication: TYPE 2 DIABETES MELLITUS
     Dosage: TAKEN FROM: ABOUT 1 YEAR AGO DOSE:30 UNIT(S)
     Route: 051

REACTIONS (4)
  - Hunger [Unknown]
  - Weight increased [Unknown]
  - Glycosylated haemoglobin increased [Unknown]
  - Wrong drug administered [Unknown]
